FAERS Safety Report 22184438 (Version 1)
Quarter: 2023Q2

REPORT INFORMATION
  Report Type: Spontaneous
  Country: DE (occurrence: DE)
  Receive Date: 20230407
  Receipt Date: 20230407
  Transmission Date: 20230722
  Serious: Yes (Other)
  Sender: FDA-Public Use
  Company Number: DE-EMBRYOTOX-202107400

PATIENT
  Age: 1 Day
  Sex: Male
  Weight: 2.4 kg

DRUGS (3)
  1. SERTRALINE [Suspect]
     Active Substance: SERTRALINE HYDROCHLORIDE
     Indication: Anxiety disorder
     Dosage: 150 MILLIGRAM, ONCE A DAY (150 [MG/D ])
     Route: 064
     Dates: start: 20210115, end: 20211015
  2. ASPIRIN [Concomitant]
     Active Substance: ASPIRIN
     Indication: Antiphospholipid syndrome
     Dosage: 100 MILLIGRAM, DAILY 100 [MG/D ]
     Route: 064
  3. FRAGMIN [Concomitant]
     Active Substance: DALTEPARIN SODIUM
     Indication: Antiphospholipid syndrome
     Dosage: 5000 INTERNATIONAL UNIT, DAILY (5000 [I.E./D ])
     Route: 064

REACTIONS (3)
  - Diastasis recti abdominis [Unknown]
  - Small for dates baby [Recovered/Resolved]
  - Foetal exposure during pregnancy [Unknown]

NARRATIVE: CASE EVENT DATE: 20211001
